FAERS Safety Report 7308367-1 (Version None)
Quarter: 2011Q1

REPORT INFORMATION
  Report Type: 
  Country: None (occurrence: None)
  Receive Date: 20110223
  Receipt Date: 20110216
  Transmission Date: 20110831
  Serious: Yes (Other)
  Sender: FDA-Public Use
  Company Number: B0701442A

PATIENT
  Sex: Male

DRUGS (3)
  1. LAMIVUDINE-HIV [Concomitant]
  2. ZIAGEN [Suspect]
     Indication: ACQUIRED IMMUNODEFICIENCY SYNDROME
     Route: 065
  3. KALETRA [Concomitant]

REACTIONS (1)
  - SUICIDAL IDEATION [None]
